FAERS Safety Report 6539813-9 (Version None)
Quarter: 2010Q1

REPORT INFORMATION
  Report Type: 
  Country: None (occurrence: None)
  Receive Date: 20100115
  Receipt Date: 20100104
  Transmission Date: 20100710
  Serious: Yes (Death, Hospitalization, Other)
  Sender: FDA-Public Use
  Company Number: US-PFIZER INC-2009177583

PATIENT
  Sex: Male
  Weight: 72 kg

DRUGS (15)
  1. LYRICA [Suspect]
     Indication: HERPES ZOSTER
     Dosage: 50 MG, EVERY 8 HOURS
     Route: 048
     Dates: start: 20070801
  2. LYRICA [Suspect]
     Indication: DIABETIC NEUROPATHY
  3. GABAPENTIN [Suspect]
     Indication: HERPES ZOSTER
  4. GEMFIBROZIL [Suspect]
  5. INSULIN [Concomitant]
     Indication: TYPE 2 DIABETES MELLITUS
     Dosage: UNK
  6. LASIX [Concomitant]
     Dosage: UNK
  7. ALDACTONE [Concomitant]
     Dosage: UNK
  8. SYNTHROID [Concomitant]
     Dosage: UNK
  9. AMIODARONE [Concomitant]
     Dosage: UNK
  10. POTASSIUM [Concomitant]
     Dosage: UNK
  11. MIRALAX [Concomitant]
     Dosage: UNK
  12. ALLOPURINOL [Concomitant]
     Dosage: UNK
  13. OMEPRAZOLE [Concomitant]
     Dosage: UNK
  14. ACETYLSALICYLIC ACID [Concomitant]
     Dosage: UNK
  15. IMIPENEM [Concomitant]
     Dosage: UNK

REACTIONS (2)
  - DEATH [None]
  - PREVENTIVE SURGERY [None]
